FAERS Safety Report 5713484-3 (Version None)
Quarter: 2008Q2

REPORT INFORMATION
  Report Type: 
  Country: None (occurrence: None)
  Receive Date: 20080422
  Receipt Date: 20080418
  Transmission Date: 20081010
  Serious: Yes (Death, Hospitalization)
  Sender: FDA-Public Use
  Company Number: US-BOEHRINGER INGELHEIM GMBH, GERMANY-2008-BP-06174BP

PATIENT
  Sex: Male
  Weight: 83 kg

DRUGS (9)
  1. FLOMAX [Suspect]
     Route: 048
  2. SU-011,248 (SUNITINIB MALATE) [Suspect]
     Indication: PROSTATE CANCER
     Route: 048
     Dates: start: 20061031
  3. MS CONTIN [Suspect]
     Dates: start: 20061031
  4. MSIR [Suspect]
     Dates: start: 20061031
  5. ZOLADEX [Concomitant]
     Dates: start: 20051213
  6. ATENOLOL [Concomitant]
     Route: 048
  7. DIGOXIN [Concomitant]
     Route: 048
  8. WARFARIN SODIUM [Concomitant]
     Route: 048
  9. LISINOPRIL [Concomitant]
     Route: 048

REACTIONS (4)
  - DEATH [None]
  - DISEASE PROGRESSION [None]
  - DIZZINESS [None]
  - DYSPNOEA [None]
